FAERS Safety Report 6063715-8 (Version None)
Quarter: 2009Q1

REPORT INFORMATION
  Report Type: 
  Country: None (occurrence: None)
  Receive Date: 20090130
  Receipt Date: 20090120
  Transmission Date: 20090719
  Serious: Yes (Other)
  Sender: FDA-Public Use
  Company Number: A0765180A

PATIENT
  Sex: Male

DRUGS (1)
  1. CAFFEINE (FORMULATION UNKNOWN) (CAFFEINE) [Suspect]
     Dosage: ORAL
     Route: 048

REACTIONS (1)
  - NEPHROLITHIASIS [None]
